FAERS Safety Report 6469514-7 (Version None)
Quarter: 2009Q4

REPORT INFORMATION
  Report Type: 
  Country: None (occurrence: None)
  Receive Date: 20091203
  Receipt Date: 20091130
  Transmission Date: 20100525
  Serious: Yes (Other)
  Sender: FDA-Public Use
  Company Number: AU-PFIZER INC-2009303500

PATIENT
  Sex: Female

DRUGS (2)
  1. SOLU-CORTEF [Suspect]
     Dosage: 100 MG, UNK
  2. EPIPEN [Concomitant]
     Indication: HYPERSENSITIVITY

REACTIONS (1)
  - ANAPHYLACTIC REACTION [None]
